FAERS Safety Report 18587049 (Version 2)
Quarter: 2020Q4

REPORT INFORMATION
  Report Type: Report from Study
  Country: ES (occurrence: ES)
  Receive Date: 20201207
  Receipt Date: 20201209
  Transmission Date: 20210114
  Serious: Yes (Hospitalization, Other)
  Sender: FDA-Public Use
  Company Number: ES-GLAXOSMITHKLINE-ES2020GSK240305

PATIENT

DRUGS (3)
  1. BELANTAMAB MAFODOTIN. [Suspect]
     Active Substance: BELANTAMAB MAFODOTIN
     Dosage: UNK, CYCLE 3
     Route: 042
  2. BELANTAMAB MAFODOTIN. [Suspect]
     Active Substance: BELANTAMAB MAFODOTIN
     Indication: PLASMA CELL MYELOMA
     Dosage: UNK CYCLE 1
     Route: 042
  3. BELANTAMAB MAFODOTIN. [Suspect]
     Active Substance: BELANTAMAB MAFODOTIN
     Dosage: UNK, CYC
     Route: 042

REACTIONS (3)
  - Klebsiella sepsis [Unknown]
  - Streptococcal sepsis [Unknown]
  - Keratopathy [Unknown]

NARRATIVE: CASE EVENT DATE: 20201021
